FAERS Safety Report 4475402-8 (Version None)
Quarter: 2004Q4

REPORT INFORMATION
  Report Type: 
  Country: None (occurrence: None)
  Receive Date: 20041015
  Receipt Date: 20041004
  Transmission Date: 20050328
  Serious: Yes (Hospitalization, Other)
  Sender: FDA-Public Use
  Company Number: TR-ABBOTT-04P-161-0276389-00

PATIENT
  Age: 19 Year
  Sex: Female

DRUGS (1)
  1. TARKA [Suspect]
     Indication: SUICIDE ATTEMPT
     Dosage: 2 MG/180 MG
     Route: 048

REACTIONS (4)
  - BRADYCARDIA [None]
  - OVERDOSE [None]
  - SUICIDE ATTEMPT [None]
  - THROMBOTIC MICROANGIOPATHY [None]
